FAERS Safety Report 6431054-9 (Version None)
Quarter: 2009Q4

REPORT INFORMATION
  Report Type: 
  Country: None (occurrence: None)
  Receive Date: 20091106
  Receipt Date: 20091029
  Transmission Date: 20100525
  Serious: Yes (Hospitalization)
  Sender: FDA-Public Use
  Company Number: FR-TEVA-214169ISR

PATIENT
  Sex: Male

DRUGS (18)
  1. METHOTREXATE [Suspect]
     Indication: LYMPHOMA
     Route: 042
     Dates: start: 20090824, end: 20091005
  2. OMEPRAZOLE [Suspect]
     Route: 048
     Dates: end: 20091005
  3. DOXORUBICIN HCL [Concomitant]
     Indication: LYMPHOMA
     Route: 042
     Dates: start: 20090806, end: 20091005
  4. CYCLOPHOSPHAMIDE [Concomitant]
     Indication: LYMPHOMA
     Route: 042
     Dates: start: 20090824, end: 20091005
  5. DEXAMETHASONE [Concomitant]
     Indication: LYMPHOMA
     Dosage: 18MG/COURSE
     Route: 048
     Dates: start: 20090824, end: 20091005
  6. CEFTAZIDIME [Concomitant]
  7. VANCOMYCIN [Concomitant]
  8. PARACETAMOL [Concomitant]
  9. FOLINIC ACID [Concomitant]
  10. MESNA [Concomitant]
  11. ONDANSETRON HYDROCHLORIDE [Concomitant]
  12. ALIZAPRIDE HYDROCHLORIDE [Concomitant]
  13. PHLOROGLUCINOL (SPASFON) [Concomitant]
  14. NYSTATIN [Concomitant]
  15. LACTULOSE [Concomitant]
  16. METOCLOPRAMIDE [Concomitant]
  17. FUROSEMIDE [Concomitant]
     Indication: DIURETIC THERAPY
  18. VITAMIN K1 [Concomitant]

REACTIONS (2)
  - DRUG HALF-LIFE INCREASED [None]
  - DRUG INTERACTION [None]
